FAERS Safety Report 12921691 (Version 6)
Quarter: 2017Q3

REPORT INFORMATION
  Report Type: Report from Study
  Country: CA (occurrence: CA)
  Receive Date: 20161108
  Receipt Date: 20170927
  Transmission Date: 20171127
  Serious: Yes (Other)
  Sender: FDA-Public Use
  Company Number: CA-UCBSA-2016042216

PATIENT
  Sex: Female

DRUGS (5)
  1. CERTOLIZUMAB PEGOL RA [Suspect]
     Active Substance: CERTOLIZUMAB PEGOL
     Dosage: 400 MG, MONTHLY (QM) (ROUGHLY ONCE A MONTH TO EVERY 5 WEEKS OR SO)
     Route: 058
     Dates: start: 2017, end: 2017
  2. ABREVA [Concomitant]
     Active Substance: DOCOSANOL
     Indication: ORAL HERPES
     Dosage: UNK
  3. ABREVA [Concomitant]
     Active Substance: DOCOSANOL
     Indication: APHTHOUS ULCER
  4. CERTOLIZUMAB PEGOL RA [Suspect]
     Active Substance: CERTOLIZUMAB PEGOL
     Indication: RHEUMATOID ARTHRITIS
     Dosage: 400 MG, EV 2 WEEKS(QOW)
     Route: 058
     Dates: start: 20131112, end: 20131211
  5. CERTOLIZUMAB PEGOL RA [Suspect]
     Active Substance: CERTOLIZUMAB PEGOL
     Dosage: 400 MG, EV 4 WEEKS
     Route: 058
     Dates: start: 20131225, end: 20170206

REACTIONS (13)
  - Tooth infection [Recovered/Resolved]
  - Face oedema [Recovered/Resolved]
  - Toothache [Unknown]
  - Oral herpes [Unknown]
  - Drug effect decreased [Unknown]
  - Nerve root injury [Recovered/Resolved]
  - Aphthous ulcer [Unknown]
  - Drug ineffective [Unknown]
  - Sciatica [Not Recovered/Not Resolved]
  - Rheumatoid arthritis [Not Recovered/Not Resolved]
  - Labyrinthitis [Unknown]
  - Peroneal nerve palsy [Not Recovered/Not Resolved]
  - Psoriasis [Unknown]

NARRATIVE: CASE EVENT DATE: 2016
